FAERS Safety Report 25883234 (Version 4)
Quarter: 2025Q4

REPORT INFORMATION
  Report Type: Spontaneous
  Country: EU (occurrence: EU)
  Receive Date: 20251006
  Receipt Date: 20251201
  Transmission Date: 20260118
  Serious: Yes (Death, Hospitalization, Other)
  Sender: SANDOZ
  Company Number: EU-SANDOZ-SDZ2025ES038655

PATIENT
  Age: 40 Year
  Sex: Male
  Weight: 80 kg

DRUGS (6)
  1. TYRUKO [Suspect]
     Active Substance: NATALIZUMAB-SZTN
     Dosage: 300 MG, Q4W
     Route: 042
     Dates: start: 20250505
  2. TYRUKO [Suspect]
     Active Substance: NATALIZUMAB-SZTN
     Indication: Multiple sclerosis
     Dosage: 300 MG, Q4W
     Route: 065
     Dates: start: 20240603, end: 20250505
  3. TYSABRI [Suspect]
     Active Substance: NATALIZUMAB
     Indication: Multiple sclerosis
     Dosage: 300 MG, Q4W
     Route: 042
     Dates: start: 20170808, end: 20250505
  4. BRIVIACT [Concomitant]
     Active Substance: BRIVARACETAM
     Indication: Product used for unknown indication
     Dosage: 2.5 ML, Q12H
     Route: 048
     Dates: start: 20250625, end: 20250808
  5. Dexibuprofeno [Concomitant]
     Indication: Pain
     Dosage: 600 MG, Q12H
     Route: 048
     Dates: start: 20241015, end: 20250808
  6. RIVOTRIL [Concomitant]
     Active Substance: CLONAZEPAM
     Indication: Anxiety
     Dosage: 3 ML, Q8H
     Route: 048
     Dates: start: 20221021, end: 20250808

REACTIONS (2)
  - Progressive multifocal leukoencephalopathy [Fatal]
  - Immune reconstitution inflammatory syndrome [Unknown]

NARRATIVE: CASE EVENT DATE: 20250602
